FAERS Safety Report 23234814 (Version 1)
Quarter: 2023Q4

REPORT INFORMATION
  Report Type: Other
  Country: CN (occurrence: CN)
  Receive Date: 20231128
  Receipt Date: 20231128
  Transmission Date: 20240110
  Serious: Yes (Other)
  Sender: FDA-Public Use
  Company Number: CN-GE HEALTHCARE-2023CSU010455

PATIENT
  Age: 57 Year
  Sex: Female
  Weight: 62 kg

DRUGS (3)
  1. VISIPAQUE [Suspect]
     Active Substance: IODIXANOL
     Indication: Angiocardiogram
     Dosage: 30 ML, SINGLE
     Route: 042
     Dates: start: 20231110, end: 20231110
  2. VISIPAQUE [Suspect]
     Active Substance: IODIXANOL
     Indication: Coronary artery disease
  3. VISIPAQUE [Suspect]
     Active Substance: IODIXANOL
     Indication: Arteriosclerosis

REACTIONS (1)
  - Eczema [Recovering/Resolving]

NARRATIVE: CASE EVENT DATE: 20231111
